FAERS Safety Report 23436757 (Version 2)
Quarter: 2024Q1

REPORT INFORMATION
  Report Type: Spontaneous
  Country: AT (occurrence: AT)
  Receive Date: 20240124
  Receipt Date: 20240216
  Transmission Date: 20240410
  Serious: Yes (Hospitalization)
  Sender: FDA-Public Use
  Company Number: AT-AMGEN-AUTSP2024011752

PATIENT
  Sex: Female

DRUGS (67)
  1. XGEVA [Suspect]
     Active Substance: DENOSUMAB
     Indication: Product used for unknown indication
     Dosage: UNK
     Route: 065
     Dates: start: 20161201
  2. ARANESP [Suspect]
     Active Substance: DARBEPOETIN ALFA
     Indication: Product used for unknown indication
     Route: 065
  3. HERCEPTIN [Suspect]
     Active Substance: TRASTUZUMAB
     Indication: HER2 positive breast cancer
     Dosage: 8 MILLIGRAM/KILOGRAM, Q3WK
     Route: 042
     Dates: start: 20161020, end: 20161020
  4. HERCEPTIN [Suspect]
     Active Substance: TRASTUZUMAB
     Dosage: 8 MILLIGRAM/KILOGRAM, Q3WK
     Route: 042
     Dates: start: 20170112, end: 20170112
  5. HERCEPTIN [Suspect]
     Active Substance: TRASTUZUMAB
     Dosage: 6 MILLIGRAM/KILOGRAM, Q3WK
     Route: 042
     Dates: start: 20170202, end: 20180108
  6. HERCEPTIN [Suspect]
     Active Substance: TRASTUZUMAB
     Dosage: 6 MILLIGRAM/KILOGRAM, Q3WK
     Route: 042
     Dates: start: 20190906, end: 20210927
  7. HERCEPTIN [Suspect]
     Active Substance: TRASTUZUMAB
     Dosage: 6 MILLIGRAM/KILOGRAM, Q3WK
     Route: 042
     Dates: start: 20210929, end: 20220930
  8. CYTOXAN [Suspect]
     Active Substance: CYCLOPHOSPHAMIDE
     Indication: HER2 positive breast cancer
     Dosage: 500 MILLIGRAM/SQ. METER, QD
     Route: 042
     Dates: start: 20161005, end: 20161005
  9. XELODA [Suspect]
     Active Substance: CAPECITABINE
     Indication: HER2 positive breast cancer
     Dosage: 500 MILLIGRAM, QD
     Route: 065
     Dates: start: 20220930, end: 20221024
  10. XELODA [Suspect]
     Active Substance: CAPECITABINE
     Dosage: 1000 MILLIGRAM, QD
     Route: 065
     Dates: start: 20210904, end: 20210927
  11. XELODA [Suspect]
     Active Substance: CAPECITABINE
     Dosage: 1000 MILLIGRAM, QD
     Route: 065
     Dates: start: 20210929, end: 20211114
  12. XELODA [Suspect]
     Active Substance: CAPECITABINE
     Dosage: 1000 MILLIGRAM, QD
     Route: 065
     Dates: start: 20220204, end: 20220930
  13. XELODA [Suspect]
     Active Substance: CAPECITABINE
     Dosage: 1500 MILLIGRAM, QD
     Route: 065
     Dates: start: 20210430, end: 20210903
  14. KADCYLA [Suspect]
     Active Substance: ADO-TRASTUZUMAB EMTANSINE
     Indication: HER2 positive breast cancer
     Dosage: 36 MILLIGRAM/KILOGRAM (216 MG)
     Route: 042
     Dates: start: 20180205, end: 20190816
  15. TRASTUZUMAB DERUXTECAN [Suspect]
     Active Substance: TRASTUZUMAB DERUXTECAN
     Indication: HER2 positive breast cancer
     Dosage: 5.4 MILLIGRAM/KILOGRAM, Q3WK
     Route: 042
     Dates: start: 20220924, end: 20221114
  16. TRASTUZUMAB DERUXTECAN [Suspect]
     Active Substance: TRASTUZUMAB DERUXTECAN
     Dosage: 4.4 MILLIGRAM/KILOGRAM, Q3WK
     Route: 042
     Dates: start: 20221202, end: 20230714
  17. TRASTUZUMAB DERUXTECAN [Suspect]
     Active Substance: TRASTUZUMAB DERUXTECAN
     Dosage: 4.4 MILLIGRAM/KILOGRAM, Q3WK
     Route: 042
     Dates: start: 20230118
  18. ELLENCE [Suspect]
     Active Substance: EPIRUBICIN HYDROCHLORIDE
     Indication: HER2 positive breast cancer
     Dosage: 100 MILLIGRAM/SQ. METER, QD
     Route: 065
     Dates: start: 20161005, end: 20161005
  19. TUCATINIB [Suspect]
     Active Substance: TUCATINIB
     Indication: HER2 positive breast cancer
     Dosage: 300 MILLIGRAM, BID
     Route: 048
     Dates: start: 20210430, end: 20210927
  20. TUCATINIB [Suspect]
     Active Substance: TUCATINIB
     Dosage: 300 MILLIGRAM, BID
     Route: 048
     Dates: start: 20210129, end: 20221023
  21. TAXOTERE [Suspect]
     Active Substance: DOCETAXEL
     Indication: HER2 positive breast cancer
     Dosage: 75 MG/M2 (MILLIGRAM/SQ. METER), Q3WK
     Route: 042
     Dates: start: 20161020, end: 20161020
  22. TAXOTERE [Suspect]
     Active Substance: DOCETAXEL
     Dosage: 100 MG/M2, Q3WK
     Route: 042
     Dates: start: 20161201, end: 20170202
  23. TAXOTERE [Suspect]
     Active Substance: DOCETAXEL
     Dosage: 75 MG/M2 (MILLIGRAM/SQ. METER), Q3WK
     Route: 042
     Dates: start: 20161111, end: 20161111
  24. PERJETA [Suspect]
     Active Substance: PERTUZUMAB
     Indication: HER2 positive breast cancer
     Dosage: 840 MILLIGRAM, Q3WK
     Route: 042
     Dates: start: 20161020, end: 20161020
  25. PERJETA [Suspect]
     Active Substance: PERTUZUMAB
     Dosage: 840 MILLIGRAM, Q3WK
     Route: 042
     Dates: start: 20170112, end: 20170112
  26. PERJETA [Suspect]
     Active Substance: PERTUZUMAB
     Dosage: 420 MILLIGRAM, Q3WK
     Route: 042
     Dates: start: 20170202, end: 20180108
  27. PERJETA [Suspect]
     Active Substance: PERTUZUMAB
     Dosage: 420 MILLIGRAM, Q3WK
     Route: 042
     Dates: start: 20190906, end: 20210409
  28. HALCION [Concomitant]
     Active Substance: TRIAZOLAM
     Dosage: UNK
     Dates: start: 20201120
  29. LAXAGOL [Concomitant]
     Dosage: UNK
     Dates: start: 20170227
  30. LAXAGOL [Concomitant]
     Dosage: UNK
     Dates: start: 20201120
  31. RAMIPRIL [Concomitant]
     Active Substance: RAMIPRIL
     Dosage: UNK
     Dates: start: 20170227
  32. TAZOBACTAM [Concomitant]
     Active Substance: TAZOBACTAM
  33. DEXIBUPROFEN [Concomitant]
     Active Substance: DEXIBUPROFEN
     Dosage: UNK
     Dates: start: 20210312
  34. GUAR GUM [Concomitant]
     Active Substance: GUAR GUM
  35. AMOXICILLIN\CLAVULANATE POTASSIUM [Concomitant]
     Active Substance: AMOXICILLIN\CLAVULANATE POTASSIUM
  36. FENTANYL [Concomitant]
     Active Substance: FENTANYL\FENTANYL CITRATE
  37. PERFALGAN [Concomitant]
     Active Substance: ACETAMINOPHEN
  38. ONDANSETRON HYDROCHLORIDE [Concomitant]
     Active Substance: ONDANSETRON HYDROCHLORIDE
     Indication: Nausea
     Dosage: UNK
     Dates: start: 20181105
  39. IMODIUM [Concomitant]
     Active Substance: LOPERAMIDE HYDROCHLORIDE
  40. MILNACIPRAN [Concomitant]
     Active Substance: MILNACIPRAN
     Dosage: UNK
     Dates: start: 20221123
  41. ESOMEPRAZOLE [Concomitant]
     Active Substance: ESOMEPRAZOLE
     Dosage: UNK
     Dates: start: 20221123
  42. BISOPROLOL FUMARATE [Concomitant]
     Active Substance: BISOPROLOL FUMARATE
     Dosage: UNK
     Dates: start: 20170227
  43. LASIX [Concomitant]
     Active Substance: FUROSEMIDE
     Dosage: UNK
     Dates: start: 20180205
  44. METOCLOPRAMIDE [Concomitant]
     Active Substance: METOCLOPRAMIDE
     Dosage: UNK
     Dates: start: 20180205
  45. MOVICOL [Concomitant]
     Active Substance: POLYETHYLENE GLYCOL 3350\POTASSIUM CHLORIDE\SODIUM BICARBONATE\SODIUM CHLORIDE
  46. CLOBAZAM [Concomitant]
     Active Substance: CLOBAZAM
     Dosage: UNK
  47. LOPERAMIDE HYDROCHLORIDE [Concomitant]
     Active Substance: LOPERAMIDE HYDROCHLORIDE
     Indication: Diarrhoea
     Dosage: UNK
     Dates: start: 20171127
  48. PANTOPRAZOLE SODIUM [Concomitant]
     Active Substance: PANTOPRAZOLE SODIUM
  49. GLANDOMED [Concomitant]
  50. SERTRALINE HYDROCHLORIDE [Concomitant]
     Active Substance: SERTRALINE HYDROCHLORIDE
  51. HYDROMORPHONE HYDROCHLORIDE [Concomitant]
     Active Substance: HYDROMORPHONE HYDROCHLORIDE
     Dosage: UNK
     Dates: start: 20210410
  52. LIPEGFILGRASTIM [Concomitant]
     Active Substance: LIPEGFILGRASTIM
     Dosage: UNK
     Dates: start: 20171016
  53. SERTRALINE HYDROCHLORIDE [Concomitant]
     Active Substance: SERTRALINE HYDROCHLORIDE
     Dosage: UNK
     Dates: start: 20171016
  54. SUCRALAN [Concomitant]
     Dosage: UNK
     Dates: start: 20161215
  55. LEVOCETIRIZINE [Concomitant]
     Active Substance: LEVOCETIRIZINE
     Dosage: UNK
     Dates: start: 20220801
  56. APREPITANT [Concomitant]
     Active Substance: APREPITANT
     Indication: Nausea
     Dosage: UNK
     Dates: start: 20221202
  57. FILGRASTIM [Concomitant]
     Active Substance: FILGRASTIM
  58. ZOFRAN [Concomitant]
     Active Substance: ONDANSETRON HYDROCHLORIDE
  59. TRAZODONE HYDROCHLORIDE [Concomitant]
     Active Substance: TRAZODONE HYDROCHLORIDE
     Dosage: UNK
     Dates: start: 20221129
  60. XARELTO [Concomitant]
     Active Substance: RIVAROXABAN
  61. HALDOL [Concomitant]
     Active Substance: HALOPERIDOL
  62. LEVETIRACETAM [Concomitant]
     Active Substance: LEVETIRACETAM
     Indication: Epilepsy
     Dosage: UNK
     Dates: start: 20220201
  63. Paspertin [Concomitant]
  64. CEOLAT [Concomitant]
  65. POTASSIUM CHLORIDE [Concomitant]
     Active Substance: POTASSIUM CHLORIDE
  66. VIMPAT [Concomitant]
     Active Substance: LACOSAMIDE
     Dosage: UNK
  67. ALPRAZOLAM [Concomitant]
     Active Substance: ALPRAZOLAM

REACTIONS (3)
  - Nausea [Recovered/Resolved]
  - Dehydration [Recovered/Resolved]
  - Headache [Recovered/Resolved]

NARRATIVE: CASE EVENT DATE: 20180801
